FAERS Safety Report 6600401-7 (Version None)
Quarter: 2010Q1

REPORT INFORMATION
  Report Type: 
  Country: None (occurrence: None)
  Receive Date: 20100217
  Receipt Date: 20100126
  Transmission Date: 20100710
  Serious: Yes (Death)
  Sender: FDA-Public Use
  Company Number: 2009AP001540

PATIENT
  Age: 41 Year
  Sex: Female

DRUGS (1)
  1. CITALOPRAM HYDROBROMIDE [Suspect]
     Indication: DEPRESSION
     Dosage: 20 MG, PO
     Route: 048
     Dates: start: 20081101, end: 20081201

REACTIONS (9)
  - BRAIN OEDEMA [None]
  - COMA [None]
  - CREATINE URINE INCREASED [None]
  - HEADACHE [None]
  - MALAISE [None]
  - RASH [None]
  - RESPIRATORY ARREST [None]
  - SUDDEN CARDIAC DEATH [None]
  - UNRESPONSIVE TO STIMULI [None]
